FAERS Safety Report 7624609-7 (Version None)
Quarter: 2011Q3

REPORT INFORMATION
  Report Type: 
  Country: None (occurrence: None)
  Receive Date: 20110720
  Receipt Date: 20110714
  Transmission Date: 20111222
  Serious: Yes (Other)
  Sender: FDA-Public Use
  Company Number: US-AMGEN-USASP2011036110

PATIENT
  Sex: Male

DRUGS (2)
  1. NEULASTA [Suspect]
     Indication: CHEMOTHERAPY
     Dosage: 6 MG, ONE TIME DOSE
     Dates: start: 20110601
  2. VIDAZA [Concomitant]

REACTIONS (4)
  - MOBILITY DECREASED [None]
  - ADVERSE DRUG REACTION [None]
  - ARTHRALGIA [None]
  - MYALGIA [None]
